FAERS Safety Report 4724424-8 (Version None)
Quarter: 2005Q3

REPORT INFORMATION
  Report Type: 
  Country: None (occurrence: None)
  Receive Date: 20050726
  Receipt Date: 20050712
  Transmission Date: 20060218
  Serious: Yes (Hospitalization)
  Sender: FDA-Public Use
  Company Number: 2005SE04045

PATIENT
  Age: 26064 Day
  Sex: Female
  Weight: 78 kg

DRUGS (22)
  1. TCV-116 [Suspect]
     Indication: DIABETIC NEPHROPATHY
     Route: 048
     Dates: start: 20040817, end: 20040913
  2. TCV-116 [Suspect]
     Route: 048
     Dates: start: 20040914, end: 20041011
  3. TCV-116 [Suspect]
     Route: 048
     Dates: start: 20041012, end: 20050705
  4. BASEN TABLETS 0.2 [Concomitant]
     Indication: DIABETES MELLITUS NON-INSULIN-DEPENDENT
     Route: 048
  5. NICARPINE [Concomitant]
     Indication: ESSENTIAL HYPERTENSION
     Route: 048
  6. MEDIPEACE [Concomitant]
     Indication: INSOMNIA
     Route: 048
  7. NAPROXEN [Concomitant]
     Indication: SCIATICA
     Route: 048
  8. ULCERLMIN [Concomitant]
     Indication: PROPHYLAXIS
     Route: 048
  9. MEVALOTIN [Concomitant]
     Indication: HYPERLIPIDAEMIA
     Route: 048
  10. LASIX [Concomitant]
     Indication: PROPHYLAXIS
     Route: 048
     Dates: end: 20050516
  11. LASIX [Concomitant]
     Route: 048
     Dates: start: 20050517, end: 20050523
  12. LASIX [Concomitant]
     Route: 048
     Dates: start: 20050524, end: 20050705
  13. MS(CATAPLASMATA3-14) [Concomitant]
     Indication: SCIATICA
     Route: 062
  14. HAPSATAR ID [Concomitant]
     Indication: SCIATICA
     Route: 062
  15. CEREKINON [Concomitant]
     Indication: GASTRITIS
     Route: 048
     Dates: start: 20040823
  16. SELBEX [Concomitant]
     Indication: GASTRITIS
     Route: 048
     Dates: start: 20040823
  17. NOVOLIN N [Concomitant]
     Indication: DIABETES MELLITUS NON-INSULIN-DEPENDENT
     Route: 042
     Dates: end: 20041206
  18. NOVOLIN N [Concomitant]
     Route: 042
     Dates: start: 20041207, end: 20041228
  19. NOVOLIN N [Concomitant]
     Route: 042
     Dates: start: 20041229, end: 20050131
  20. NOVOLIN N [Concomitant]
     Route: 042
     Dates: start: 20050201, end: 20050523
  21. NOVOLIN N [Concomitant]
     Route: 042
     Dates: start: 20050524
  22. ALLOTOP-L [Concomitant]
     Indication: ESSENTIAL HYPERTENSION
     Route: 048

REACTIONS (14)
  - ABDOMINAL DISTENSION [None]
  - ANGIONEUROTIC OEDEMA [None]
  - ANOREXIA [None]
  - ARRHYTHMIA [None]
  - BLOOD PRESSURE INCREASED [None]
  - CARDIAC FAILURE [None]
  - CARDIOMEGALY [None]
  - CYSTITIS [None]
  - ECZEMA [None]
  - MALAISE [None]
  - OEDEMA PERIPHERAL [None]
  - PLEURAL EFFUSION [None]
  - PULMONARY OEDEMA [None]
  - VISION BLURRED [None]
